FAERS Safety Report 13196976 (Version 1)
Quarter: 2017Q1

REPORT INFORMATION
  Report Type: Spontaneous
  Country: US (occurrence: US)
  Receive Date: 20170208
  Receipt Date: 20170208
  Transmission Date: 20170428
  Serious: No
  Sender: FDA-Public Use
  Company Number: US-ASTRAZENECA-2017SE10910

PATIENT
  Sex: Male

DRUGS (1)
  1. PULMICORT FLEXHALER [Suspect]
     Active Substance: BUDESONIDE
     Indication: ASTHMA
     Dosage: 180MCG, 2 PUFFS, TWICE A DAY
     Route: 055
     Dates: start: 20170112

REACTIONS (3)
  - Product quality issue [Unknown]
  - Condition aggravated [Unknown]
  - Drug ineffective [Unknown]
